FAERS Safety Report 25113332 (Version 1)
Quarter: 2025Q1

REPORT INFORMATION
  Report Type: Spontaneous
  Country: IN (occurrence: IN)
  Receive Date: 20250324
  Receipt Date: 20250324
  Transmission Date: 20250409
  Serious: Yes (Death)
  Sender: PFIZER
  Company Number: IN-PFIZER INC-PV202500035153

PATIENT
  Age: 65 Year
  Sex: Male

DRUGS (1)
  1. LORLATINIB [Suspect]
     Active Substance: LORLATINIB
     Route: 048
     Dates: start: 20250219, end: 20250226

REACTIONS (1)
  - Death [Fatal]

NARRATIVE: CASE EVENT DATE: 20250310
